FAERS Safety Report 9403499 (Version 1)
Quarter: 2013Q3

REPORT INFORMATION
  Report Type: Spontaneous
  Country: US (occurrence: US)
  Receive Date: 20130716
  Receipt Date: 20130716
  Transmission Date: 20140515
  Serious: No
  Sender: FDA-Public Use
  Company Number: US-009507513-1306USA012742

PATIENT
  Sex: Female

DRUGS (3)
  1. PRINIVIL [Suspect]
     Route: 048
  2. SYNTHROID [Suspect]
     Indication: HYPOTHYROIDISM
     Dosage: UNK, DAILY
     Route: 048
  3. AMLODIPINE BESYLATE [Suspect]

REACTIONS (3)
  - Cardiac flutter [Unknown]
  - Nervousness [Unknown]
  - Insomnia [Unknown]
